FAERS Safety Report 11893590 (Version 15)
Quarter: 2018Q4

REPORT INFORMATION
  Report Type: Spontaneous
  Country: US (occurrence: US)
  Receive Date: 20160106
  Receipt Date: 20181002
  Transmission Date: 20190204
  Serious: Yes (Hospitalization)
  Sender: FDA-Public Use
  Company Number: US-ACTELION PHARMACEUTICALS US, INC.-A-US2015-127621

PATIENT
  Age: 55 Year
  Sex: Female
  Weight: 77.98 kg

DRUGS (4)
  1. OPSUMIT [Suspect]
     Active Substance: MACITENTAN
     Dosage: 10 MG, QD
     Route: 048
  2. OPSUMIT [Suspect]
     Active Substance: MACITENTAN
     Indication: PULMONARY HYPERTENSION
     Dosage: 10 MG, QD
     Route: 048
     Dates: start: 20151022
  3. ORENITRAM [Concomitant]
     Active Substance: TREPROSTINIL
  4. REMODULIN [Concomitant]
     Active Substance: TREPROSTINIL

REACTIONS (28)
  - Feeling abnormal [Unknown]
  - Chest discomfort [Unknown]
  - Secretion discharge [Unknown]
  - Infusion site warmth [Unknown]
  - Infusion site erythema [Not Recovered/Not Resolved]
  - Infusion site infection [Unknown]
  - Gastrooesophageal reflux disease [Unknown]
  - Fall [Unknown]
  - Chest pain [Unknown]
  - Blood glucose decreased [Unknown]
  - Cough [Unknown]
  - Limb injury [Unknown]
  - Systemic lupus erythematosus [Unknown]
  - Infusion site swelling [Unknown]
  - Weight decreased [Unknown]
  - Dyspnoea [Unknown]
  - Pyrexia [Unknown]
  - Muscular weakness [Unknown]
  - Dyspnoea exertional [Recovered/Resolved]
  - Infusion site pain [Unknown]
  - Weight increased [Unknown]
  - Dizziness [Unknown]
  - Concussion [Unknown]
  - Diarrhoea [Unknown]
  - Presyncope [Recovered/Resolved]
  - Dizziness postural [Unknown]
  - Asthma [Unknown]
  - Weight fluctuation [Unknown]

NARRATIVE: CASE EVENT DATE: 201804
